FAERS Safety Report 8090578 (Version 2)
Quarter: 2013Q1

REPORT INFORMATION
  Report Type: Spontaneous
  Country: US (occurrence: US)
  Receive Date: 20110815
  Receipt Date: 20130227
  Transmission Date: 20140127
  Serious: Yes (Hospitalization, Other)
  Sender: FDA-Public Use
  Company Number: US-BAYER-2011-072063

PATIENT
  Age: 19 Year
  Sex: Female
  Weight: 74.83 kg

DRUGS (5)
  1. OCELLA [Suspect]
  2. YASMIN [Suspect]
  3. ZYPREXA [Concomitant]
  4. CYMBALTA [Concomitant]
  5. LATERA [Concomitant]

REACTIONS (5)
  - Pulmonary embolism [None]
  - Thrombosis [None]
  - Thrombosis [None]
  - Emotional distress [None]
  - Anxiety [None]
